FAERS Safety Report 21263648 (Version 3)
Quarter: 2022Q4

REPORT INFORMATION
  Report Type: Spontaneous
  Country: US (occurrence: US)
  Receive Date: 20220829
  Receipt Date: 20221004
  Transmission Date: 20230113
  Serious: No
  Sender: FDA-Public Use
  Company Number: US-GSKCCFUS-Case-01475040_AE-84312

PATIENT
  Sex: Male

DRUGS (1)
  1. TRELEGY ELLIPTA [Suspect]
     Active Substance: FLUTICASONE FUROATE\UMECLIDINIUM BROMIDE\VILANTEROL TRIFENATATE
     Indication: Product used for unknown indication
     Dosage: 1 PUFF(S), QD, 200/62.5/25
     Route: 055

REACTIONS (3)
  - Dyspnoea [Not Recovered/Not Resolved]
  - Drug ineffective [Unknown]
  - Product complaint [Unknown]
